FAERS Safety Report 22356619 (Version 7)
Quarter: 2023Q4

REPORT INFORMATION
  Report Type: Spontaneous
  Country: US (occurrence: US)
  Receive Date: 20230523
  Receipt Date: 20231107
  Transmission Date: 20240110
  Serious: Yes (Other)
  Sender: FDA-Public Use
  Company Number: US-MALLINCKRODT-MNK202301030

PATIENT
  Sex: Male

DRUGS (3)
  1. CORTICOTROPIN [Suspect]
     Active Substance: CORTICOTROPIN
     Indication: Nephrotic syndrome
     Route: 058
     Dates: start: 20230102
  2. CORTICOTROPIN [Suspect]
     Active Substance: CORTICOTROPIN
     Indication: Nephrotic syndrome
     Dosage: 40 UNITS
     Route: 058
     Dates: start: 20230507, end: 2023
  3. CORTICOTROPIN [Suspect]
     Active Substance: CORTICOTROPIN
     Dosage: 80 UNITS
     Route: 058
     Dates: start: 2023

REACTIONS (10)
  - Eye disorder [Not Recovered/Not Resolved]
  - Gout [Unknown]
  - Proteinuria [Not Recovered/Not Resolved]
  - Skin discolouration [Not Recovered/Not Resolved]
  - Fluid retention [Unknown]
  - Weight increased [Not Recovered/Not Resolved]
  - Peripheral swelling [Unknown]
  - Headache [Recovered/Resolved]
  - Product dose omission in error [Unknown]
  - Product storage error [Unknown]

NARRATIVE: CASE EVENT DATE: 20230101
